FAERS Safety Report 9459482 (Version 1)
Quarter: 2013Q3

REPORT INFORMATION
  Report Type: Spontaneous
  Country: US (occurrence: US)
  Receive Date: 20130815
  Receipt Date: 20130815
  Transmission Date: 20140515
  Serious: No
  Sender: FDA-Public Use
  Company Number: US-BAYER-2013-098262

PATIENT
  Age: 60 Year
  Sex: Female

DRUGS (1)
  1. BETASERON [Suspect]
     Indication: RHEUMATOID ARTHRITIS
     Dosage: 0.25 MG, UNK
     Route: 058
     Dates: start: 201302

REACTIONS (2)
  - Feeling cold [None]
  - Depression [Recovering/Resolving]
